FAERS Safety Report 8729401 (Version 2)
Quarter: 2012Q4

REPORT INFORMATION
  Report Type: 
  Country: US (occurrence: US)
  Receive Date: 20120817
  Receipt Date: 20120911
  Transmission Date: 20130627
  Serious: Yes (Hospitalization)
  Sender: FDA-Public Use
  Company Number: US-PFIZER INC-2012199994

PATIENT
  Age: 50 Year
  Sex: Female
  Weight: 65.76 kg

DRUGS (8)
  1. PRISTIQ [Suspect]
     Indication: DEPRESSION
     Dosage: 50 mg, 1x/day
     Route: 048
     Dates: start: 2011, end: 201207
  2. NEXIUM [Concomitant]
     Indication: OESOPHAGEAL DISORDER
     Dosage: UNK
  3. SYMBICORT [Concomitant]
     Indication: LUNG DISORDER
     Dosage: UNK
  4. SPIRIVA [Concomitant]
     Indication: LUNG DISORDER
     Dosage: UNK
  5. CRESTOR [Concomitant]
     Indication: CARDIAC DISORDER
     Dosage: UNK
  6. PLAVIX [Concomitant]
     Indication: CARDIAC DISORDER
     Dosage: UNK
  7. LISINOPRIL [Concomitant]
     Indication: HYPERTENSION
     Dosage: 20 mg, UNK
  8. CARVEDILOL [Concomitant]
     Indication: CARDIAC DISORDER
     Dosage: UNK

REACTIONS (7)
  - Chest pain [Recovering/Resolving]
  - Feeling abnormal [Not Recovered/Not Resolved]
  - Anxiety [Not Recovered/Not Resolved]
  - Stress [Not Recovered/Not Resolved]
  - Fatigue [Not Recovered/Not Resolved]
  - Pain [Not Recovered/Not Resolved]
  - Back disorder [Not Recovered/Not Resolved]
